FAERS Safety Report 8153530-3 (Version None)
Quarter: 2012Q1

REPORT INFORMATION
  Report Type: 
  Country: None (occurrence: None)
  Receive Date: 20120221
  Receipt Date: 20120206
  Transmission Date: 20120608
  Serious: No
  Sender: FDA-Public Use
  Company Number: US-ENDO PHARMACEUTICALS INC.-OPER20120060

PATIENT
  Sex: Male

DRUGS (1)
  1. OPANA ER [Suspect]
     Indication: BACK PAIN
     Dosage: 20 MG
     Route: 048
     Dates: end: 20120201

REACTIONS (4)
  - DRUG DEPENDENCE [None]
  - CHEST PAIN [None]
  - MEDICATION ERROR [None]
  - DIZZINESS [None]
